FAERS Safety Report 21138880 (Version 2)
Quarter: 2022Q3

REPORT INFORMATION
  Report Type: Spontaneous
  Country: BR (occurrence: BR)
  Receive Date: 20220727
  Receipt Date: 20220819
  Transmission Date: 20221026
  Serious: Yes (Other)
  Sender: FDA-Public Use
  Company Number: BR-BRISTOL-MYERS SQUIBB COMPANY-2022-078518

PATIENT
  Sex: Female

DRUGS (3)
  1. REVLIMID [Suspect]
     Active Substance: LENALIDOMIDE
     Indication: Plasma cell myeloma
     Dosage: 15MG, DAILY FOR 21 DAYS, 7 DAYS BREAK (28 DAY CYCLE)
     Route: 065
     Dates: start: 20211025
  2. REVLIMID [Suspect]
     Active Substance: LENALIDOMIDE
     Route: 065
  3. DEXAMETHASONE [Suspect]
     Active Substance: DEXAMETHASONE
     Indication: Product used for unknown indication
     Route: 065

REACTIONS (4)
  - Monoclonal immunoglobulin present [Unknown]
  - Blood albumin decreased [Unknown]
  - Beta globulin increased [Unknown]
  - Gamma butyric dehydrogenase increased [Unknown]
